FAERS Safety Report 8509553-5 (Version None)
Quarter: 2012Q3

REPORT INFORMATION
  Report Type: 
  Country: None (occurrence: None)
  Receive Date: 20120713
  Receipt Date: 20120710
  Transmission Date: 20120928
  Serious: Yes (Death, Other)
  Sender: FDA-Public Use
  Company Number: PHEH2012US009193

PATIENT
  Sex: Male

DRUGS (1)
  1. RECLAST [Suspect]
     Route: 042
     Dates: start: 20110401

REACTIONS (4)
  - AORTIC STENOSIS [None]
  - ARRHYTHMIA [None]
  - CIRCULATORY COLLAPSE [None]
  - LOSS OF CONSCIOUSNESS [None]
